FAERS Safety Report 16547404 (Version 2)
Quarter: 2021Q3

REPORT INFORMATION
  Report Type: Spontaneous
  Country: US (occurrence: US)
  Receive Date: 20190709
  Receipt Date: 20210709
  Transmission Date: 20211014
  Serious: No
  Sender: FDA-Public Use
  Company Number: US-ASTELLAS-2019US023262

PATIENT
  Sex: Female

DRUGS (1)
  1. MYRBETRIQ [Suspect]
     Active Substance: MIRABEGRON
     Indication: PRODUCT USED FOR UNKNOWN INDICATION
     Dosage: UNK UNK, ONCE DAILY
     Route: 065
     Dates: start: 20190529

REACTIONS (6)
  - Bacteriuria [Unknown]
  - Anxiety [Unknown]
  - Nasopharyngitis [Unknown]
  - Diarrhoea [Unknown]
  - Feeling abnormal [Unknown]
  - Dry mouth [Unknown]
